FAERS Safety Report 8791890 (Version 2)
Quarter: 2012Q4

REPORT INFORMATION
  Report Type: 
  Country: US (occurrence: US)
  Receive Date: 20120918
  Receipt Date: 20121017
  Transmission Date: 20130627
  Serious: Yes (Other)
  Sender: FDA-Public Use
  Company Number: PHEH2012US017873

PATIENT
  Sex: Female

DRUGS (20)
  1. TEKTURNA [Suspect]
     Indication: HYPERTENSION
     Dosage: 300 mg, QD
     Route: 048
     Dates: start: 2009
  2. VALTURNA [Suspect]
  3. ATENOLOL [Concomitant]
     Dosage: 50 mg, QD
  4. HYDROCHLOROTHIAZIDE [Concomitant]
     Dosage: 25 mg, BID
  5. BUMEX [Concomitant]
     Dosage: 1 DF (5mg), every other day
  6. OXYBUTYNIN CHLORIDE [Concomitant]
     Dosage: 5 mg, QD
  7. FEMARA [Concomitant]
     Dosage: 2.5 mg, QD
  8. CITALOPRAM [Concomitant]
     Dosage: 25 mg, QD
  9. OMEPRAZOLE [Concomitant]
     Dosage: 20 mg, BID
  10. ALVESCO [Concomitant]
     Dosage: 160 mg, QD
  11. VITAMIN D [Concomitant]
     Dosage: 2000 IU, UNK
  12. MULTI-VITAMIN [Concomitant]
  13. ZYRTEC [Concomitant]
  14. ANASOX [Concomitant]
  15. BENEFIBER [Concomitant]
  16. IMODIAN IBUPROPHIN [Concomitant]
  17. PREDNISONE [Concomitant]
  18. CHEMOTHERAPEUTICS [Concomitant]
  19. OXYBUTYNIN [Concomitant]
  20. ADVAIR [Concomitant]

REACTIONS (7)
  - Anaphylactic reaction [Unknown]
  - Drug hypersensitivity [Unknown]
  - Rash generalised [Unknown]
  - Lymphoedema [Unknown]
  - Bronchitis [Recovered/Resolved]
  - Allergy to animal [Unknown]
  - Food allergy [Unknown]
